FAERS Safety Report 12342734 (Version 1)
Quarter: 2016Q2

REPORT INFORMATION
  Report Type: Spontaneous
  Country: US (occurrence: US)
  Receive Date: 20160506
  Receipt Date: 20160506
  Transmission Date: 20160815
  Serious: Yes (Other)
  Sender: FDA-Public Use
  Company Number: US-PFIZER INC-2016246067

PATIENT
  Age: 14 Year
  Sex: Female

DRUGS (1)
  1. GENOTROPIN [Suspect]
     Active Substance: SOMATROPIN
     Indication: GROWTH HORMONE DEFICIENCY
     Dosage: 2.8 MG, DAILY
     Route: 058
     Dates: start: 201502, end: 201601

REACTIONS (3)
  - Disease progression [Unknown]
  - Brain neoplasm [Unknown]
  - Weight increased [Unknown]

NARRATIVE: CASE EVENT DATE: 201512
